FAERS Safety Report 9717142 (Version 2)
Quarter: 2013Q4

REPORT INFORMATION
  Report Type: Spontaneous
  Country: DE (occurrence: DE)
  Receive Date: 20131127
  Receipt Date: 20131217
  Transmission Date: 20140711
  Serious: No
  Sender: FDA-Public Use
  Company Number: DE-TEVA-445744GER

PATIENT
  Age: 84 Year
  Sex: Female

DRUGS (1)
  1. DICLOFENAC-ABZ 50 MG TABLETTEN [Suspect]
     Indication: SCIATICA
     Dosage: 50 MILLIGRAM DAILY;
     Route: 048
     Dates: start: 2013, end: 2013

REACTIONS (2)
  - Micturition disorder [Recovered/Resolved]
  - Urinary hesitation [Recovered/Resolved]
